FAERS Safety Report 10235648 (Version 2)
Quarter: 2014Q2

REPORT INFORMATION
  Report Type: Spontaneous
  Country: US (occurrence: US)
  Receive Date: 20140613
  Receipt Date: 20140613
  Transmission Date: 20141212
  Serious: Yes (Other)
  Sender: FDA-Public Use
  Company Number: PHHY2014US038250

PATIENT
  Age: 55 Year
  Sex: Female

DRUGS (28)
  1. LIORESAL INTRATECAL [Suspect]
     Indication: MUSCLE SPASTICITY
     Dosage: UNK UKN, UNK
     Route: 037
     Dates: start: 20120124
  2. LIORESAL INTRATECAL [Suspect]
     Dosage: UNK
     Route: 037
  3. ARMODAFINIL [Suspect]
     Dosage: 1 DF, DAILY
  4. FLUCONAZOLE TABLETS [Suspect]
     Dosage: 1 DF, DAILY
     Route: 048
  5. LORATADINE TABLETS USP [Suspect]
     Dosage: 10 MG, UNK
  6. ACETYLSALICYLIC ACID [Suspect]
     Dosage: 1 DF, DAILY
     Route: 048
  7. B COMPLEX [Suspect]
     Dosage: 1 DF, DAILY
  8. ACETAMINOPHEN/CODEINE PHOSPHATE TABLETS USP, (DC) [Suspect]
     Indication: PAIN
     Dosage: 2 DF, Q6H (1 TO 2 TABLETS EVERY 6 HOURS, AS NEEDED)
     Route: 048
  9. TECFIDERA [Suspect]
     Dosage: 150 MG, BID
     Route: 048
  10. CLOTRIMAZOLE [Suspect]
     Dosage: 1 APPLICATION DAILY
     Route: 067
  11. REGLAN                                  /USA/ [Suspect]
     Dosage: 1 DF, TID
     Route: 048
  12. OXYCODONE [Suspect]
     Indication: PAIN
     Dosage: 1 DF, Q4H
     Route: 048
  13. SUMATRIPTAN [Suspect]
     Indication: MIGRAINE
     Dosage: 0.5 DF AS NEEDED
     Route: 048
  14. LAMOTRIGINE [Suspect]
     Dosage: 1 DF, BID
     Route: 048
  15. NABUMETONE TABLETS [Suspect]
     Dosage: 2 DF, DAILY
     Route: 048
  16. ERGOCALCIFEROL [Suspect]
     Dosage: 1 DF, EVERY 7 DAYS
     Route: 048
  17. POTASSIUM CHLORIDE [Suspect]
     Dosage: 1 DF, DAILY
     Route: 048
  18. ZANTAC [Suspect]
     Dosage: 1 DF, BID
     Route: 048
  19. AMBIEN [Suspect]
     Indication: SLEEP DISORDER
     Dosage: 1 DF (NIGHTLY AS NEEDED)
     Route: 048
  20. MOMETASONE [Suspect]
     Dosage: 2 DF, DAILY (2 SPRAY DAILY)
     Route: 045
  21. LASIX [Suspect]
     Indication: SWELLING
     Dosage: 1.5 DF, (0.5 TO 1.5 DF AS NEEDED)
     Route: 048
  22. MIRABEGRON [Suspect]
     Dosage: 1 DF, DAILY
     Route: 048
  23. PAROXETINE [Suspect]
     Dosage: 1 DF, QD (AT NIGHT)
     Route: 048
  24. TYLENOL ARTHRITIS EXTENDED RELIEF [Suspect]
     Indication: PAIN
     Dosage: 2 DF AS NEEDED (1 OR 2 TAB AS NEEED)
     Route: 048
  25. CAFFEINE [Suspect]
     Indication: SLEEP DISORDER
     Dosage: 1 DF, PRN
     Route: 048
  26. CALCIUM 600 + D [Suspect]
     Indication: GASTROINTESTINAL DISORDER
     Dosage: 2 DF AS NEEDED (1 OR 2 CAPSULES AS NEEDED, 600 MG-400 U)
     Route: 048
  27. MULTIVITAMIN                       /00097801/ [Suspect]
     Dosage: UNK DAILY
     Route: 048
  28. NITROFURANTOIN CAPSULES USP [Suspect]
     Dosage: 1 DF, DAILY
     Route: 048

REACTIONS (20)
  - Lumbar vertebral fracture [Unknown]
  - Spinal compression fracture [Unknown]
  - Rectal prolapse [Unknown]
  - Vitamin B6 deficiency [Unknown]
  - Plicated tongue [Unknown]
  - Osteoporosis [Unknown]
  - Restless legs syndrome [Unknown]
  - Ulnar nerve injury [Unknown]
  - Neuropathy peripheral [Unknown]
  - Rotator cuff syndrome [Not Recovered/Not Resolved]
  - Urinary tract infection [Not Recovered/Not Resolved]
  - Narcolepsy [Not Recovered/Not Resolved]
  - Rosacea [Not Recovered/Not Resolved]
  - Hypercholesterolaemia [Not Recovered/Not Resolved]
  - Radial nerve injury [Unknown]
  - Incorrect route of drug administration [Unknown]
  - Convulsion [Unknown]
  - Muscle spasticity [Unknown]
  - Muscle spasms [Unknown]
  - Implant site extravasation [Unknown]
